FAERS Safety Report 20656076 (Version 6)
Quarter: 2024Q2

REPORT INFORMATION
  Report Type: Report from Study
  Country: US (occurrence: US)
  Receive Date: 20220330
  Receipt Date: 20240610
  Transmission Date: 20240716
  Serious: Yes (Other)
  Sender: FDA-Public Use
  Company Number: US-ABBVIE-22K-163-4337271-00

PATIENT
  Sex: Female

DRUGS (5)
  1. IMBRUVICA [Suspect]
     Active Substance: IBRUTINIB
     Indication: Chronic lymphocytic leukaemia
     Dosage: FORM STRENGTH: 140 MILLIGRAM, FREQUENCY TEXT: UNKNOWN
     Route: 048
     Dates: start: 201612
  2. IMBRUVICA [Suspect]
     Active Substance: IBRUTINIB
     Indication: Chronic lymphocytic leukaemia
     Dosage: FORM STRENGTH: 140 MILLIGRAM, FREQUENCY TEXT: UNKNOWN
     Route: 048
  3. PFIZER-BIONTECH COVID-19 VACCINE [Concomitant]
     Active Substance: TOZINAMERAN
     Indication: COVID-19 immunisation
     Dosage: FIRST DOSE, ONCE
     Route: 030
     Dates: start: 20210128, end: 20210128
  4. PFIZER-BIONTECH COVID-19 VACCINE [Concomitant]
     Active Substance: TOZINAMERAN
     Indication: COVID-19 immunisation
     Dosage: SECOND DOSE, ONCE
     Route: 030
     Dates: start: 20210218, end: 20210218
  5. PFIZER-BIONTECH COVID-19 VACCINE [Concomitant]
     Active Substance: TOZINAMERAN
     Indication: COVID-19 immunisation
     Dosage: BOOSTER DOSE, ONCE
     Route: 030
     Dates: start: 20210816, end: 20210816

REACTIONS (14)
  - Carpal tunnel syndrome [Unknown]
  - Angiopathy [Unknown]
  - Carpal tunnel syndrome [Recovering/Resolving]
  - Hair texture abnormal [Recovering/Resolving]
  - Skin discolouration [Unknown]
  - Atrial fibrillation [Unknown]
  - Blood alkaline phosphatase increased [Unknown]
  - Nail discolouration [Unknown]
  - Onycholysis [Unknown]
  - Cerebral ischaemia [Unknown]
  - Pruritus [Unknown]
  - Memory impairment [Recovering/Resolving]
  - Tumour marker abnormal [Unknown]
  - Tremor [Recovering/Resolving]
